FAERS Safety Report 11217434 (Version 6)
Quarter: 2016Q1

REPORT INFORMATION
  Report Type: Report from Study
  Country: CA (occurrence: CA)
  Receive Date: 20150625
  Receipt Date: 20160129
  Transmission Date: 20160525
  Serious: Yes (Hospitalization)
  Sender: FDA-Public Use
  Company Number: CA-AEGERION PHARMACEUTICALS-AEGR001424

PATIENT
  Age: 39 Year
  Sex: Male

DRUGS (3)
  1. JUXTAPID [Suspect]
     Active Substance: LOMITAPIDE MESYLATE
     Dosage: 15 MG, QD
     Route: 048
  2. REPATHA [Concomitant]
     Active Substance: EVOLOCUMAB
     Indication: HYPERLIPIDAEMIA
     Dosage: 2 DF, EVERY 15 DAYS
     Dates: start: 2015
  3. JUXTAPID [Suspect]
     Active Substance: LOMITAPIDE MESYLATE
     Indication: PRODUCT USED FOR UNKNOWN INDICATION
     Dosage: 5 MG, UNK
     Route: 048
     Dates: start: 20150518, end: 20150607

REACTIONS (12)
  - Product used for unknown indication [Unknown]
  - Insomnia [Unknown]
  - Drug dose omission [Recovered/Resolved]
  - Nausea [Unknown]
  - Feeling abnormal [Unknown]
  - Oropharyngeal pain [Unknown]
  - Abdominal distension [Unknown]
  - Coronary artery occlusion [Unknown]
  - Abdominal pain upper [Unknown]
  - Dry mouth [Unknown]
  - Treatment noncompliance [Unknown]
  - Increased appetite [Unknown]

NARRATIVE: CASE EVENT DATE: 2015
